FAERS Safety Report 8862384 (Version 2)
Quarter: 2012Q4

REPORT INFORMATION
  Report Type: 
  Country: US (occurrence: US)
  Receive Date: 20121026
  Receipt Date: 20121214
  Transmission Date: 20130627
  Serious: Yes (Other)
  Sender: FDA-Public Use
  Company Number: US-PFIZER INC-2012261981

PATIENT

DRUGS (1)
  1. XALATAN [Suspect]
     Dosage: Unk

REACTIONS (1)
  - Glaucoma [Unknown]
